FAERS Safety Report 17217552 (Version 3)
Quarter: 2020Q1

REPORT INFORMATION
  Report Type: Report from Study
  Country: None (occurrence: US)
  Receive Date: 20191231
  Receipt Date: 20200330
  Transmission Date: 20200409
  Serious: Yes (Other)
  Sender: FDA-Public Use
  Company Number: US-ABBVIE-19K-163-3212200-00

PATIENT
  Sex: Female

DRUGS (4)
  1. METAMUCIL [Concomitant]
     Active Substance: PLANTAGO SEED
     Indication: PRODUCT USED FOR UNKNOWN INDICATION
  2. HUMIRA [Suspect]
     Active Substance: ADALIMUMAB
     Route: 058
  3. PREDNISONE. [Concomitant]
     Active Substance: PREDNISONE
     Indication: PRODUCT USED FOR UNKNOWN INDICATION
  4. HUMIRA [Suspect]
     Active Substance: ADALIMUMAB
     Indication: RHEUMATOID ARTHRITIS
     Route: 058

REACTIONS (6)
  - Arthralgia [Recovered/Resolved]
  - Large intestine perforation [Recovered/Resolved]
  - Colectomy [Not Recovered/Not Resolved]
  - Influenza [Not Recovered/Not Resolved]
  - Frequent bowel movements [Recovering/Resolving]
  - Ileostomy [Recovered/Resolved]

NARRATIVE: CASE EVENT DATE: 2019
